FAERS Safety Report 18764830 (Version 1)
Quarter: 2021Q1

REPORT INFORMATION
  Report Type: Spontaneous
  Country: FR (occurrence: FR)
  Receive Date: 20210121
  Receipt Date: 20210121
  Transmission Date: 20210419
  Serious: Yes (Hospitalization)
  Sender: FDA-Public Use
  Company Number: FR-AUROBINDO-AUR-APL-2021-001807

PATIENT
  Age: 32 Year
  Sex: Female

DRUGS (9)
  1. ZOLOFT [Interacting]
     Active Substance: SERTRALINE HYDROCHLORIDE
     Indication: PRODUCT USED FOR UNKNOWN INDICATION
     Dosage: UNK
     Route: 065
  2. KEPPRA [Interacting]
     Active Substance: LEVETIRACETAM
     Indication: PRODUCT USED FOR UNKNOWN INDICATION
     Dosage: UNK UNK, TWO TIMES A DAY (1.25G IN THE MORNING AND 1.5G IN THE EVENING)
     Route: 065
  3. VALIUM [Interacting]
     Active Substance: DIAZEPAM
     Indication: PRODUCT USED FOR UNKNOWN INDICATION
     Dosage: 10 MILLIGRAM, TWO TIMES A DAY
     Route: 065
  4. SERTRALINE [Interacting]
     Active Substance: SERTRALINE HYDROCHLORIDE
     Indication: PRODUCT USED FOR UNKNOWN INDICATION
     Dosage: 50 MILLIGRAM, ONCE A DAY
     Route: 065
  5. GARDENAL [Interacting]
     Active Substance: PHENOBARBITAL
     Dosage: 150 MILLIGRAM, TWO TIMES A DAY
     Route: 065
  6. VIMPAT [Interacting]
     Active Substance: LACOSAMIDE
     Indication: PRODUCT USED FOR UNKNOWN INDICATION
     Dosage: 200 MILLIGRAM, TWO TIMES A DAY (MORNING AND EVENING)
     Route: 065
  7. GARDENAL [Interacting]
     Active Substance: PHENOBARBITAL
     Indication: EPILEPSY
     Dosage: 100 MILLIGRAM, TWO TIMES A DAY (MORNING AND EVENING)
     Route: 065
  8. TERCIAN [Interacting]
     Active Substance: CYAMEMAZINE
     Indication: PRODUCT USED FOR UNKNOWN INDICATION
     Dosage: UNK
     Route: 065
  9. RISPERIDONE. [Suspect]
     Active Substance: RISPERIDONE
     Indication: PRODUCT USED FOR UNKNOWN INDICATION
     Dosage: 1.5 MILLIGRAM, ONCE A DAY
     Route: 065

REACTIONS (7)
  - Fatigue [Unknown]
  - Personality disorder [Unknown]
  - Abdominal pain upper [Unknown]
  - Prescribed overdose [Unknown]
  - Labelled drug-drug interaction medication error [Unknown]
  - Thinking abnormal [Unknown]
  - Affective disorder [Unknown]
